FAERS Safety Report 10053352 (Version 1)
Quarter: 2014Q2

REPORT INFORMATION
  Report Type: Spontaneous
  Country: US (occurrence: US)
  Receive Date: 20140402
  Receipt Date: 20140402
  Transmission Date: 20141212
  Serious: No
  Sender: FDA-Public Use
  Company Number: US-MALLINCKRODT-T201401752

PATIENT
  Age: 55 Year
  Sex: Female

DRUGS (2)
  1. OPTIRAY [Suspect]
     Indication: COMPUTERISED TOMOGRAM
     Dosage: 90 ML, UNK
     Route: 042
  2. PEPCID [Concomitant]

REACTIONS (3)
  - Bronchospasm [Unknown]
  - Throat irritation [Unknown]
  - Cough [Unknown]
